FAERS Safety Report 8087977-0 (Version None)
Quarter: 2012Q1

REPORT INFORMATION
  Report Type: 
  Country: None (occurrence: None)
  Receive Date: 20120130
  Receipt Date: 20120124
  Transmission Date: 20120608
  Serious: Yes (Life-Threatening, Hospitalization)
  Sender: FDA-Public Use
  Company Number: ZA-ASTRAZENECA-2012SE05213

PATIENT
  Sex: Female

DRUGS (5)
  1. VENLAFAXINE [Concomitant]
     Route: 048
  2. LANSOPRAZOLE [Concomitant]
     Dosage: DAILY
     Route: 048
  3. LYRICA [Concomitant]
     Route: 048
     Dates: start: 20120125
  4. SEROQUEL [Suspect]
     Route: 048
  5. LAMICTAL [Concomitant]
     Route: 048
     Dates: start: 20120125

REACTIONS (2)
  - PLATELET COUNT DECREASED [None]
  - LYMPHOMA [None]
